FAERS Safety Report 24770883 (Version 2)
Quarter: 2025Q3

REPORT INFORMATION
  Report Type: Spontaneous
  Country: JP (occurrence: JP)
  Receive Date: 20241224
  Receipt Date: 20250809
  Transmission Date: 20251021
  Serious: Yes (Other)
  Sender: ALEXION PHARMACEUTICALS
  Company Number: JP-ASTRAZENECA-240143139_032810_P_1

PATIENT

DRUGS (1)
  1. BREZTRI [Suspect]
     Active Substance: BUDESONIDE\FORMOTEROL\GLYCOPYRROLATE

REACTIONS (5)
  - Hand fracture [Unknown]
  - Angina pectoris [Unknown]
  - Pancreatitis chronic [Unknown]
  - Emphysema [Unknown]
  - Product complaint [Unknown]

NARRATIVE: CASE EVENT DATE: 20240801
